FAERS Safety Report 23452766 (Version 1)
Quarter: 2024Q1

REPORT INFORMATION
  Report Type: Spontaneous
  Country: US (occurrence: None)
  Receive Date: 20240129
  Receipt Date: 20240129
  Transmission Date: 20240410
  Serious: Yes (Other)
  Sender: FDA-Public Use
  Company Number: None

PATIENT
  Age: 64 Year
  Sex: Female
  Weight: 81 kg

DRUGS (13)
  1. GEMTESA [Suspect]
     Active Substance: VIBEGRON
     Indication: Hypertonic bladder
     Dosage: OTHER QUANTITY : 1 TABLET(S);?FREQUENCY : DAILY;?
     Route: 048
     Dates: start: 20240116, end: 20240129
  2. cpapp machine for sleep apnea [Concomitant]
  3. COLOSTOMY BAGS [Concomitant]
  4. TAMSULOSIN [Concomitant]
     Active Substance: TAMSULOSIN
  5. LOSARTAN [Concomitant]
     Active Substance: LOSARTAN
  6. ROSUVASTATIN [Concomitant]
     Active Substance: ROSUVASTATIN
  7. MELOXICAM [Concomitant]
     Active Substance: MELOXICAM
  8. GEMTESA [Concomitant]
     Active Substance: VIBEGRON
  9. MELATONIN [Concomitant]
     Active Substance: MELATONIN
  10. ACTEAMINOPHEN [Concomitant]
  11. CETIRIZINE TABELETS [Concomitant]
  12. VITAMIN D3 [Concomitant]
     Active Substance: CHOLECALCIFEROL
  13. ASPIRIN [Concomitant]
     Active Substance: ASPIRIN

REACTIONS (4)
  - Headache [None]
  - Cough [None]
  - Nasal congestion [None]
  - Rhinorrhoea [None]

NARRATIVE: CASE EVENT DATE: 20240126
